FAERS Safety Report 8940978 (Version 1)
Quarter: 2012Q4

REPORT INFORMATION
  Report Type: 
  Country: US (occurrence: US)
  Receive Date: 20121203
  Receipt Date: 20121203
  Transmission Date: 20130627
  Serious: No
  Sender: FDA-Public Use
  Company Number: US-B.I. PHARMACEUTICALS,INC./RIDGEFIELD-2012-BI-01661BP

PATIENT
  Age: 82 Year
  Sex: Female
  Weight: 61 kg

DRUGS (4)
  1. SPIRIVA [Suspect]
     Indication: EMPHYSEMA
     Dosage: 18 mcg
     Route: 048
     Dates: start: 20121121
  2. METOPROLOL [Concomitant]
     Indication: CARDIAC DISORDER
     Dosage: 75 mg
     Route: 048
     Dates: start: 2006
  3. DIGOXIN [Concomitant]
     Indication: CARDIAC DISORDER
     Dosage: 0.05 mg
     Dates: start: 2006
  4. PLAVIX [Concomitant]
     Indication: CARDIAC DISORDER
     Dosage: 75 mg
     Route: 048
     Dates: start: 2006

REACTIONS (2)
  - Dyspepsia [Not Recovered/Not Resolved]
  - Oropharyngeal pain [Unknown]
